FAERS Safety Report 25014663 (Version 1)
Quarter: 2025Q1

REPORT INFORMATION
  Report Type: Spontaneous
  Country: US (occurrence: US)
  Receive Date: 20250226
  Receipt Date: 20250226
  Transmission Date: 20250408
  Serious: No
  Sender: PFIZER
  Company Number: US-PFIZER INC-PV202500022544

PATIENT
  Age: 58 Year
  Sex: Female

DRUGS (9)
  1. SOLU-MEDROL [Suspect]
     Active Substance: METHYLPREDNISOLONE SODIUM SUCCINATE
  2. TARCEVA [Concomitant]
     Active Substance: ERLOTINIB HYDROCHLORIDE
  3. METFORMIN [Concomitant]
     Active Substance: METFORMIN HYDROCHLORIDE
  4. TRULICITY [Concomitant]
     Active Substance: DULAGLUTIDE
  5. PREDNISONE [Concomitant]
     Active Substance: PREDNISONE
  6. MODAFINIL [Concomitant]
     Active Substance: MODAFINIL
  7. IBUPROFEN [Concomitant]
     Active Substance: IBUPROFEN
  8. ALEVE [Concomitant]
     Active Substance: NAPROXEN SODIUM
  9. OCREVUS [Concomitant]
     Active Substance: OCRELIZUMAB

REACTIONS (1)
  - Polyuria [Unknown]
